FAERS Safety Report 7792726-7 (Version None)
Quarter: 2011Q4

REPORT INFORMATION
  Report Type: 
  Country: None (occurrence: None)
  Receive Date: 20111003
  Receipt Date: 20110923
  Transmission Date: 20120403
  Serious: Yes (Other)
  Sender: FDA-Public Use
  Company Number: US-ASTRAZENECA-2011SE33474

PATIENT
  Age: 78 Year
  Sex: Male

DRUGS (1)
  1. TOPROL-XL [Suspect]
     Route: 048

REACTIONS (8)
  - POLYP [None]
  - GASTROINTESTINAL TRACT ADENOMA [None]
  - MASS [None]
  - PLEURAL EFFUSION [None]
  - LUNG NEOPLASM [None]
  - COLORECTAL CANCER [None]
  - DIVERTICULUM INTESTINAL [None]
  - COLONIC POLYP [None]
